FAERS Safety Report 7028743-4 (Version None)
Quarter: 2010Q4

REPORT INFORMATION
  Report Type: 
  Country: None (occurrence: None)
  Receive Date: 20101004
  Receipt Date: 20101004
  Transmission Date: 20110411
  Serious: Yes (Other)
  Sender: FDA-Public Use
  Company Number: None

PATIENT
  Age: 56 Year
  Sex: Female
  Weight: 77.1115 kg

DRUGS (1)
  1. RECLAST [Suspect]
     Indication: OSTEOPOROSIS
     Dosage: 5MG ONCE A YEAR IV DRIP
     Route: 041
     Dates: start: 20100728, end: 20100728

REACTIONS (5)
  - DISORIENTATION [None]
  - DIZZINESS [None]
  - HEADACHE [None]
  - RASH PRURITIC [None]
  - VOMITING [None]
